FAERS Safety Report 9669366 (Version 1)
Quarter: 2013Q4

REPORT INFORMATION
  Report Type: Spontaneous
  Country: US (occurrence: US)
  Receive Date: 20131105
  Receipt Date: 20131105
  Transmission Date: 20140711
  Serious: No
  Sender: FDA-Public Use
  Company Number: US-ABBVIE-12P-163-0980320-00

PATIENT
  Age: 64 Year
  Sex: Female

DRUGS (4)
  1. TRICOR [Suspect]
     Indication: PRODUCT USED FOR UNKNOWN INDICATION
  2. FISH OIL [Interacting]
     Indication: PRODUCT USED FOR UNKNOWN INDICATION
  3. COD LIVER OIL [Interacting]
     Indication: PRODUCT USED FOR UNKNOWN INDICATION
  4. FENTANYL [Interacting]
     Indication: PRODUCT USED FOR UNKNOWN INDICATION

REACTIONS (1)
  - Drug interaction [Unknown]
